FAERS Safety Report 4737298-6 (Version None)
Quarter: 2005Q3

REPORT INFORMATION
  Report Type: 
  Country: None (occurrence: None)
  Receive Date: 20050808
  Receipt Date: 20050728
  Transmission Date: 20060218
  Serious: Yes (Other)
  Sender: FDA-Public Use
  Company Number: GB-MERCK-0507GBR00214

PATIENT
  Age: 65 Year
  Sex: Male

DRUGS (9)
  1. CRIXIVAN [Suspect]
     Route: 048
     Dates: start: 19980801
  2. NEVIRAPINE [Concomitant]
     Route: 065
  3. ALLOPURINOL [Concomitant]
     Route: 065
  4. ABACAVIR SUCCINATE [Concomitant]
     Route: 065
  5. INDOMETHACIN [Concomitant]
     Route: 065
  6. ALFUZOSIN HYDROCHLORIDE [Concomitant]
     Route: 048
  7. LANSOPRAZOLE [Concomitant]
     Route: 048
  8. CITALOPRAM [Concomitant]
     Route: 048
  9. ZOPICLONE [Concomitant]
     Route: 065

REACTIONS (1)
  - LEUKAEMIA [None]
